FAERS Safety Report 15376245 (Version 2)
Quarter: 2018Q3

REPORT INFORMATION
  Report Type: Spontaneous
  Country: CH (occurrence: CH)
  Receive Date: 20180912
  Receipt Date: 20180926
  Transmission Date: 20181010
  Serious: Yes (Life-Threatening, Hospitalization, Disabling, Other)
  Sender: FDA-Public Use
  Company Number: CH-FERRINGPH-2018FE05027

PATIENT

DRUGS (1)
  1. PICOPREP [Suspect]
     Active Substance: ANHYDROUS CITRIC ACID\MAGNESIUM OXIDE\SODIUM PICOSULFATE
     Indication: BOWEL PREPARATION
     Dosage: 1 DF, ONCE/SINGLE
     Route: 048
     Dates: start: 20180628, end: 20180628

REACTIONS (7)
  - Fall [Recovered/Resolved]
  - Syncope [Recovered/Resolved]
  - Cerebellar haematoma [Not Recovered/Not Resolved]
  - Subarachnoid haemorrhage [Not Recovered/Not Resolved]
  - Skull fracture [Not Recovered/Not Resolved]
  - Vertigo positional [Not Recovered/Not Resolved]
  - Olfactory nerve disorder [Not Recovered/Not Resolved]

NARRATIVE: CASE EVENT DATE: 20180628
